FAERS Safety Report 23196489 (Version 1)
Quarter: 2023Q4

REPORT INFORMATION
  Report Type: Spontaneous
  Country: US (occurrence: None)
  Receive Date: 20231116
  Receipt Date: 20231116
  Transmission Date: 20240110
  Serious: Yes (Hospitalization)
  Sender: FDA-Public Use
  Company Number: None

PATIENT
  Age: 8 Year
  Sex: Male
  Weight: 27 kg

DRUGS (1)
  1. VYVANSE [Suspect]
     Active Substance: LISDEXAMFETAMINE DIMESYLATE
     Indication: Attention deficit hyperactivity disorder
     Dates: start: 20231112, end: 20231112

REACTIONS (13)
  - Chills [None]
  - Vomiting [None]
  - Heart rate increased [None]
  - Seizure like phenomena [None]
  - Pyrexia [None]
  - Ear infection [None]
  - Headache [None]
  - White blood cell count increased [None]
  - Laboratory test abnormal [None]
  - Hypersomnia [None]
  - Urinary tract infection [None]
  - Staphylococcal infection [None]
  - Hydronephrosis [None]

NARRATIVE: CASE EVENT DATE: 20231112
